FAERS Safety Report 6880607-2 (Version None)
Quarter: 2010Q3

REPORT INFORMATION
  Report Type: 
  Country: None (occurrence: None)
  Receive Date: 20100727
  Receipt Date: 20091201
  Transmission Date: 20110219
  Serious: No
  Sender: FDA-Public Use
  Company Number: A0833968A

PATIENT
  Age: 77 Year
  Sex: Female

DRUGS (2)
  1. ZANTAC [Suspect]
     Indication: GASTRITIS
     Dosage: 150MG AS REQUIRED
     Route: 048
     Dates: start: 19990101
  2. ATENOLOL [Concomitant]

REACTIONS (3)
  - DRUG INEFFECTIVE [None]
  - DYSPEPSIA [None]
  - PAIN [None]
